FAERS Safety Report 8533148-0 (Version None)
Quarter: 2012Q2

REPORT INFORMATION
  Report Type: 
  Country: None (occurrence: None)
  Receive Date: 20120412
  Receipt Date: 20090122
  Transmission Date: 20120825
  Serious: Yes (Other)
  Sender: FDA-Public Use
  Company Number: PHEH2008US06303

PATIENT
  Age: 53 Year
  Sex: Female
  Weight: 53.5 kg

DRUGS (2)
  1. WELLBUTRIN SR [Concomitant]
  2. ESTALIS COMBIPATCH (ESTRADIOL, NORETHISTERONE ACETATE) TRANS-THERAPEUT [Suspect]
     Dosage: 50/250, TRANSDERMAL
     Route: 062
     Dates: start: 19970101, end: 20030101

REACTIONS (8)
  - BREAST LUMP REMOVAL [None]
  - MASTECTOMY [None]
  - BREAST RECONSTRUCTION [None]
  - BREAST CALCIFICATIONS [None]
  - BIOPSY BREAST ABNORMAL [None]
  - BREAST CANCER STAGE II [None]
  - BREAST MASS [None]
  - ULTRASOUND SCAN ABNORMAL [None]
